APPROVED DRUG PRODUCT: BACLOFEN
Active Ingredient: BACLOFEN
Strength: 20MG
Dosage Form/Route: TABLET;ORAL
Application: A217687 | Product #003 | TE Code: AB
Applicant: MICRO LABS LTD
Approved: Nov 8, 2023 | RLD: No | RS: No | Type: RX